FAERS Safety Report 7865366-9 (Version None)
Quarter: 2011Q4

REPORT INFORMATION
  Report Type: 
  Country: None (occurrence: None)
  Receive Date: 20111028
  Receipt Date: 20101206
  Transmission Date: 20120403
  Serious: No
  Sender: FDA-Public Use
  Company Number: US-GLAXOSMITHKLINE-A0897993A

PATIENT
  Age: 67 Year
  Sex: Male

DRUGS (6)
  1. LISINOPRIL AND HYDROCHLOROTHIAZIDE [Concomitant]
  2. METOPROLOL TARTRATE [Concomitant]
  3. DILTIAZEM HCL [Concomitant]
  4. PRAVASTATIN [Concomitant]
  5. ADVAIR DISKUS 100/50 [Suspect]
     Indication: PRODUCT USED FOR UNKNOWN INDICATION
     Dosage: 1PUFF TWICE PER DAY
     Route: 055
     Dates: start: 20100701
  6. VENTOLIN [Concomitant]

REACTIONS (3)
  - MALAISE [None]
  - DRUG INEFFECTIVE [None]
  - PRODUCT QUALITY ISSUE [None]
